FAERS Safety Report 8346967-0 (Version None)
Quarter: 2012Q2

REPORT INFORMATION
  Report Type: 
  Country: None (occurrence: None)
  Receive Date: 20120507
  Receipt Date: 20120507
  Transmission Date: 20120825
  Serious: Yes (Hospitalization)
  Sender: FDA-Public Use
  Company Number: None

PATIENT
  Sex: Female
  Weight: 55 kg

DRUGS (3)
  1. CYTARABINE [Suspect]
     Dosage: 157 MG
  2. DAUNORUBICIN HYDROCHLORIDE [Suspect]
     Dosage: 80 MG
  3. ETOPOSIDE [Suspect]
     Dosage: 15.7 MG

REACTIONS (15)
  - HAEMOGLOBIN DECREASED [None]
  - TUMOUR LYSIS SYNDROME [None]
  - BLOOD POTASSIUM INCREASED [None]
  - WHITE BLOOD CELL COUNT DECREASED [None]
  - INTERNATIONAL NORMALISED RATIO INCREASED [None]
  - HAEMODYNAMIC INSTABILITY [None]
  - DYSPNOEA [None]
  - BLOOD CREATININE INCREASED [None]
  - PROTEIN TOTAL DECREASED [None]
  - HAEMODIALYSIS [None]
  - ANURIA [None]
  - HYPOTENSION [None]
  - PYREXIA [None]
  - PULMONARY OEDEMA [None]
  - DISSEMINATED INTRAVASCULAR COAGULATION [None]
